FAERS Safety Report 8614430-5 (Version None)
Quarter: 2012Q3

REPORT INFORMATION
  Report Type: 
  Country: None (occurrence: None)
  Receive Date: 20120810
  Receipt Date: 20120731
  Transmission Date: 20120928
  Serious: Yes (Death)
  Sender: FDA-Public Use
  Company Number: CIO12012662

PATIENT
  Age: 18 Year
  Sex: Male
  Weight: 90.7 kg

DRUGS (3)
  1. NYQUIL COLD + FLU ALCOHOL 10% NIGHTTIME RELIEF, CHERRY FLAVOR (ETHANOL [Suspect]
     Indication: INSOMNIA
     Dosage: 2 DOSE CUPS AT BEDTIME, ORAL
     Route: 048
  2. NYQUIL COLD + FLU ALCOHOL 10% NIGHTTIME RELIEF, CHERRY FLAVOR (ETHANOL [Suspect]
     Indication: SINUS DISORDER
     Dosage: 2 DOSE CUPS AT BEDTIME, ORAL
     Route: 048
  3. DAYQUIL (DEXTROMETHORPHAN HYDROBROMIDE, GUAIFENESIN, PARACETAMOL, PSEU [Concomitant]

REACTIONS (4)
  - BLOOD ETHANOL INCREASED [None]
  - OFF LABEL USE [None]
  - INCORRECT DOSE ADMINISTERED [None]
  - ROAD TRAFFIC ACCIDENT [None]
